FAERS Safety Report 5201713-4 (Version None)
Quarter: 2007Q1

REPORT INFORMATION
  Report Type: 
  Country: None (occurrence: None)
  Receive Date: 20070104
  Receipt Date: 20061219
  Transmission Date: 20070707
  Serious: Yes (Other)
  Sender: FDA-Public Use
  Company Number: 2006JP005423

PATIENT
  Age: 19 Year
  Sex: Male

DRUGS (3)
  1. PROGRAF [Suspect]
     Indication: RENAL TRANSPLANT
  2. MYCOPHENOLATE MOFETIL [Concomitant]
  3. METHYLPREDNISOLONE 16MG TAB [Concomitant]

REACTIONS (5)
  - ADENOVIRUS INFECTION [None]
  - CHRONIC ALLOGRAFT NEPHROPATHY [None]
  - DYSURIA [None]
  - HAEMATURIA [None]
  - TUBULOINTERSTITIAL NEPHRITIS [None]
